FAERS Safety Report 10041289 (Version 1)
Quarter: 2014Q1

REPORT INFORMATION
  Report Type: Spontaneous
  Country: GB (occurrence: None)
  Receive Date: 20140325
  Receipt Date: 20140325
  Transmission Date: 20141002
  Serious: Yes (Hospitalization)
  Sender: FDA-Public Use
  Company Number: IPC201403-000129

PATIENT
  Age: 57 Year
  Sex: Male

DRUGS (14)
  1. WARFARIN [Suspect]
     Indication: DEEP VEIN THROMBOSIS
     Dosage: FOR FIRST 2 DAYS
  2. FRAGMIN [Suspect]
     Indication: DEEP VEIN THROMBOSIS
     Dosage: 18000 UNITS
  3. ASPIRIN (ASPIRIN) (ASPIRIN) [Suspect]
  4. SIMVASTATIN (SIMVASTATIN) (SIMVASTATIN) [Suspect]
  5. CO-AMOXICLAV [Suspect]
  6. RAMIPRIL (RAMIPRIL) (RAMIPRIL) [Concomitant]
  7. QUININE (QUININE) (QUININE) [Concomitant]
  8. LEVOTHYROXINE (LEVOTHYROXINE) (LEVOTHYROXINE) [Concomitant]
  9. CARBOCISTEINE (CARBOCISTEINE) (CARBOCISTEINE) [Concomitant]
  10. DILTIAZEM (DILTIAZEM) (DILTIAZEM) [Concomitant]
  11. BUDESONIDE (BUDESONIDE) (BUDESONIDE) [Concomitant]
  12. FORMOTEROL (FORMOTEROL) (FORMOTEROL) [Concomitant]
  13. TIOTROPIUM (TIOTROPIUM) (TIOPROIUM) [Concomitant]
  14. SALBUTAMOL (SALBUTAMOL) (SALBUTAMOL) [Concomitant]

REACTIONS (8)
  - Compartment syndrome [None]
  - International normalised ratio increased [None]
  - Drug interaction [None]
  - Oxygen saturation decreased [None]
  - Chronic obstructive pulmonary disease [None]
  - Cellulitis [None]
  - Paraesthesia [None]
  - Haemoglobin decreased [None]
